FAERS Safety Report 9919149 (Version 1)
Quarter: 2014Q1

REPORT INFORMATION
  Report Type: Spontaneous
  Country: US (occurrence: US)
  Receive Date: 20140224
  Receipt Date: 20140224
  Transmission Date: 20141002
  Serious: No
  Sender: FDA-Public Use
  Company Number: US-PFIZER INC-2014052731

PATIENT
  Age: 63 Year
  Sex: Female
  Weight: 49.9 kg

DRUGS (2)
  1. EFFEXOR XR [Suspect]
     Indication: ANXIETY
     Dosage: UNK
     Dates: end: 2013
  2. EFFEXOR XR [Suspect]
     Dosage: 75 MG, DAILY
     Dates: start: 201401

REACTIONS (2)
  - Diarrhoea [Recovering/Resolving]
  - Faecal incontinence [Unknown]
